FAERS Safety Report 6537400-X (Version None)
Quarter: 2010Q1

REPORT INFORMATION
  Report Type: 
  Country: None (occurrence: None)
  Receive Date: 20100107
  Receipt Date: 20091223
  Transmission Date: 20100710
  Serious: Yes (Other)
  Sender: FDA-Public Use
  Company Number: DE-1180157

PATIENT
  Age: 83 Year
  Sex: Female

DRUGS (1)
  1. FLUORESCITE [Suspect]
     Indication: ANGIOGRAM RETINA
     Dosage: 5 ML (0.16ML/S) INTRAVENOUS BOLUS
     Route: 040
     Dates: start: 20091202, end: 20091202

REACTIONS (2)
  - HALLUCINATION [None]
  - HYPERSOMNIA [None]
